FAERS Safety Report 6163549-X (Version None)
Quarter: 2009Q2

REPORT INFORMATION
  Report Type: 
  Country: None (occurrence: None)
  Receive Date: 20090422
  Receipt Date: 20020826
  Transmission Date: 20091009
  Serious: No
  Sender: FDA-Public Use
  Company Number: US-SOLVAY-00202002146

PATIENT
  Age: 45 Year
  Sex: Female

DRUGS (2)
  1. ANDROGEL [Suspect]
     Indication: ACCIDENTAL EXPOSURE
     Dosage: DAILY DOSE: 5 G.
     Route: 062
     Dates: start: 20020201, end: 20020601
  2. ANDROGEL [Suspect]
     Dosage: DAILY DOSE: 10 G.
     Route: 062
     Dates: start: 20020601

REACTIONS (1)
  - ALOPECIA [None]
